FAERS Safety Report 24875630 (Version 1)
Quarter: 2025Q1

REPORT INFORMATION
  Report Type: Spontaneous
  Country: GB (occurrence: GB)
  Receive Date: 20250122
  Receipt Date: 20250122
  Transmission Date: 20250409
  Serious: Yes (Life-Threatening, Hospitalization)
  Sender: ELI LILLY AND COMPANY
  Company Number: GB-ELI_LILLY_AND_COMPANY-GB202501011774

PATIENT
  Age: 62 Year
  Sex: Male

DRUGS (4)
  1. MOUNJARO [Suspect]
     Active Substance: TIRZEPATIDE
     Indication: Product used for unknown indication
     Route: 065
  2. MOUNJARO [Suspect]
     Active Substance: TIRZEPATIDE
     Indication: Product used for unknown indication
     Route: 065
  3. METFORMIN [Concomitant]
     Active Substance: METFORMIN HYDROCHLORIDE
     Indication: Product used for unknown indication
     Route: 065
  4. TOUJEO [Concomitant]
     Active Substance: INSULIN GLARGINE
     Indication: Product used for unknown indication
     Route: 065

REACTIONS (5)
  - Pneumonia [Unknown]
  - Sepsis [Unknown]
  - Escherichia infection [Unknown]
  - Feeling abnormal [Unknown]
  - Product dose omission issue [Unknown]
